FAERS Safety Report 24822295 (Version 2)
Quarter: 2025Q1

REPORT INFORMATION
  Report Type: Report from Study
  Country: US (occurrence: US)
  Receive Date: 20250108
  Receipt Date: 20250121
  Transmission Date: 20250408
  Serious: Yes (Death, Hospitalization, Other)
  Sender: ABBVIE
  Company Number: US-ABBVIE-6075933

PATIENT
  Age: 83 Year
  Sex: Female
  Weight: 64.41 kg

DRUGS (4)
  1. SYNTHROID [Suspect]
     Active Substance: LEVOTHYROXINE SODIUM
     Indication: Hypothyroidism
     Dosage: STOP DATE TEXT: -OCT-2024 TO -NOV-2024?START DATE TEXT: THREE TO FIVE YEARS AGO
     Route: 048
     Dates: start: 2020, end: 202410
  2. ASPIRIN [Concomitant]
     Active Substance: ASPIRIN
     Indication: Product used for unknown indication
  3. CYMBALTA [Concomitant]
     Active Substance: DULOXETINE HYDROCHLORIDE
     Indication: Product used for unknown indication
  4. ESCITALOPRAM [Concomitant]
     Active Substance: ESCITALOPRAM OXALATE
     Indication: Anxiety

REACTIONS (7)
  - Hepatic cancer stage IV [Fatal]
  - Small intestine carcinoma [Not Recovered/Not Resolved]
  - Gastric cancer [Fatal]
  - Biliary obstruction [Recovered/Resolved]
  - Bile duct cancer stage I [Recovered/Resolved]
  - Small intestinal obstruction [Not Recovered/Not Resolved]
  - Bile duct cancer stage II [Recovered/Resolved]

NARRATIVE: CASE EVENT DATE: 20220401
